FAERS Safety Report 4299058-2 (Version None)
Quarter: 2004Q1

REPORT INFORMATION
  Report Type: 
  Country: None (occurrence: None)
  Receive Date: 20040217
  Receipt Date: 20040203
  Transmission Date: 20041129
  Serious: Yes (Other)
  Sender: FDA-Public Use
  Company Number: HQWYE241612JAN04

PATIENT
  Sex: Female

DRUGS (2)
  1. EFFEXOR [Suspect]
     Indication: DEPRESSION
     Dosage: ORAL
     Route: 048
     Dates: start: 20031201, end: 20031201
  2. ANTIBIOTIC (ANTIBIOTIC) [Concomitant]

REACTIONS (5)
  - APHASIA [None]
  - DYSPHAGIA [None]
  - GUILLAIN-BARRE SYNDROME [None]
  - MUSCULAR WEAKNESS [None]
  - VIRAL INFECTION [None]
